FAERS Safety Report 5992110-2 (Version None)
Quarter: 2008Q4

REPORT INFORMATION
  Report Type: 
  Country: None (occurrence: None)
  Receive Date: 20081211
  Receipt Date: 20081205
  Transmission Date: 20090506
  Serious: Yes (Disabling)
  Sender: FDA-Public Use
  Company Number: JP-MERCK-0812USA02228

PATIENT
  Age: 69 Year
  Sex: Male

DRUGS (4)
  1. PROPECIA [Suspect]
     Route: 048
     Dates: start: 20070401, end: 20081004
  2. EBRANTIL [Concomitant]
     Route: 048
  3. FAMOTIDINE [Concomitant]
     Route: 048
  4. LIPITOR [Concomitant]
     Route: 048

REACTIONS (2)
  - ALANINE AMINOTRANSFERASE INCREASED [None]
  - ASPARTATE AMINOTRANSFERASE INCREASED [None]
